FAERS Safety Report 15295433 (Version 2)
Quarter: 2018Q4

REPORT INFORMATION
  Report Type: Spontaneous
  Country: PL (occurrence: PL)
  Receive Date: 20180820
  Receipt Date: 20180824
  Transmission Date: 20190204
  Serious: Yes (Other)
  Sender: FDA-Public Use
  Company Number: PHHY2018PL072202

PATIENT
  Age: 90 Year
  Sex: Female

DRUGS (5)
  1. POLMATINE [Interacting]
     Active Substance: MEMANTINE HYDROCHLORIDE
     Indication: DEMENTIA
     Dosage: 1 DF, (UG/LITRE) QD
     Route: 048
  2. BETO ZK [Suspect]
     Active Substance: METOPROLOL SUCCINATE
     Indication: PERIPHERAL VASCULAR DISORDER
     Dosage: 23.75 MG, QD
     Route: 048
  3. POLHUMIN N [Interacting]
     Active Substance: INSULIN HUMAN
     Indication: DIABETES MELLITUS
     Dosage: UNK UNK, BID
     Route: 058
  4. PERINDOPRIL ERBUMINE. [Interacting]
     Active Substance: PERINDOPRIL ERBUMINE
     Indication: HYPERTENSION
     Dosage: 5 MG, QD
     Route: 048
  5. EVERTAS /01383204/ [Interacting]
     Active Substance: RIVASTIGMINE TARTRATE
     Indication: DEMENTIA ALZHEIMER^S TYPE
     Dosage: 4.6 MG, QD
     Route: 048

REACTIONS (3)
  - Asthenia [Recovered/Resolved]
  - Dementia [Recovered/Resolved]
  - Drug interaction [Unknown]
